FAERS Safety Report 14675280 (Version 1)
Quarter: 2018Q1

REPORT INFORMATION
  Report Type: Spontaneous
  Country: US (occurrence: US)
  Receive Date: 20180323
  Receipt Date: 20180323
  Transmission Date: 20180509
  Serious: Yes (Other)
  Sender: FDA-Public Use
  Company Number: US-FERRINGPH-2018FE01367

PATIENT

DRUGS (2)
  1. DESMOPRESSIN [Suspect]
     Active Substance: DESMOPRESSIN
     Indication: DIABETES INSIPIDUS
     Dosage: 4-6 ?G, 2 TIMES DAILY
     Route: 042
  2. DESMOPRESSIN [Suspect]
     Active Substance: DESMOPRESSIN
     Dosage: 2 ?G, 2 TIMES DAILY
     Route: 058

REACTIONS (3)
  - Off label use [Unknown]
  - Hypernatraemia [Recovered/Resolved]
  - Product use in unapproved indication [Unknown]
